FAERS Safety Report 19844526 (Version 2)
Quarter: 2021Q3

REPORT INFORMATION
  Report Type: Spontaneous
  Country: US (occurrence: US)
  Receive Date: 20210916
  Receipt Date: 20210928
  Transmission Date: 20211014
  Serious: Yes (Other)
  Sender: FDA-Public Use
  Company Number: US-TEVA-2021-US-1952612

PATIENT
  Sex: Male

DRUGS (7)
  1. VEDOLIZUMAB [Suspect]
     Active Substance: VEDOLIZUMAB
     Indication: IMMUNE-MEDIATED ENTEROCOLITIS
     Route: 065
  2. METHYLPREDNISOLONE. [Suspect]
     Active Substance: METHYLPREDNISOLONE
     Indication: IMMUNE-MEDIATED ENTEROCOLITIS
     Route: 065
  3. NIVOLUMAB [Suspect]
     Active Substance: NIVOLUMAB
     Indication: METASTATIC MALIGNANT MELANOMA
     Route: 050
  4. USTEKINUMAB [Suspect]
     Active Substance: USTEKINUMAB
     Indication: IMMUNE-MEDIATED ENTEROCOLITIS
     Route: 042
  5. PREDNISONE. [Suspect]
     Active Substance: PREDNISONE
     Indication: IMMUNE-MEDIATED ENTEROCOLITIS
     Route: 065
  6. IPILIMUMAB [Suspect]
     Active Substance: IPILIMUMAB
     Indication: METASTATIC MALIGNANT MELANOMA
     Route: 050
  7. INFLIXIMAB [Suspect]
     Active Substance: INFLIXIMAB
     Indication: IMMUNE-MEDIATED ENTEROCOLITIS
     Route: 050

REACTIONS (3)
  - Immune-mediated enterocolitis [Recovering/Resolving]
  - Infusion related reaction [Unknown]
  - Drug ineffective [Unknown]
